FAERS Safety Report 23045168 (Version 1)
Quarter: 2023Q4

REPORT INFORMATION
  Report Type: Spontaneous
  Country: GB (occurrence: GB)
  Receive Date: 20231009
  Receipt Date: 20231009
  Transmission Date: 20240110
  Serious: Yes (Disabling)
  Sender: FDA-Public Use
  Company Number: GB-MHRA-MED-202309281118446010-VTKNM

PATIENT
  Age: 88 Year
  Sex: Male

DRUGS (1)
  1. ACITRETIN [Suspect]
     Active Substance: ACITRETIN
     Indication: Psoriasis
     Dosage: 10 MILLIGRAM DAILY; 10MG O.D.; DURATION : 906 DAYS
     Route: 065
     Dates: start: 20210101, end: 20230626

REACTIONS (1)
  - Spinal stenosis [Not Recovered/Not Resolved]
